FAERS Safety Report 14243996 (Version 1)
Quarter: 2017Q4

REPORT INFORMATION
  Report Type: Spontaneous
  Country: DE (occurrence: DE)
  Receive Date: 20171201
  Receipt Date: 20171201
  Transmission Date: 20180321
  Serious: Yes (Other)
  Sender: FDA-Public Use
  Company Number: DE-INTERCEPT-PMOCA2017001513

PATIENT

DRUGS (3)
  1. MINISISTON 20 FEM [Suspect]
     Active Substance: ETHINYL ESTRADIOL\LEVONORGESTREL
     Dosage: UNK
     Dates: end: 20171107
  2. OCALIVA [Suspect]
     Active Substance: OBETICHOLIC ACID
     Indication: BILIARY CIRRHOSIS PRIMARY
     Dosage: 5 MG, QD
     Route: 048
     Dates: start: 20170328, end: 20171107
  3. URSOFALK [Concomitant]
     Active Substance: URSODIOL
     Dosage: 2 G, UNK
     Dates: start: 20081118

REACTIONS (4)
  - Blood alkaline phosphatase increased [Recovering/Resolving]
  - Fatigue [Unknown]
  - Alanine aminotransferase increased [Recovering/Resolving]
  - Blood bilirubin increased [Recovering/Resolving]
